FAERS Safety Report 6105194-8 (Version None)
Quarter: 2009Q1

REPORT INFORMATION
  Report Type: 
  Country: None (occurrence: None)
  Receive Date: 20090306
  Receipt Date: 20090304
  Transmission Date: 20090719
  Serious: Yes (Congenital Anomaly, Other)
  Sender: FDA-Public Use
  Company Number: US-BRISTOL-MYERS SQUIBB COMPANY-14530828

PATIENT

DRUGS (2)
  1. ABILIFY [Suspect]
     Route: 064
     Dates: start: 20030902
  2. LEXAPRO [Suspect]
     Route: 064

REACTIONS (1)
  - CLEFT PALATE [None]
